FAERS Safety Report 4479391-1 (Version None)
Quarter: 2004Q4

REPORT INFORMATION
  Report Type: 
  Country: None (occurrence: None)
  Receive Date: 20041020
  Receipt Date: 20041002
  Transmission Date: 20050328
  Serious: Yes (Other)
  Sender: FDA-Public Use
  Company Number: 200413929FR

PATIENT
  Sex: Female

DRUGS (3)
  1. ARAVA [Suspect]
     Indication: PSORIATIC ARTHROPATHY
     Route: 048
     Dates: start: 20040601, end: 20040601
  2. CORTANCYL [Concomitant]
     Route: 048
  3. CEBUTID [Concomitant]
     Route: 048

REACTIONS (4)
  - AMNESIA [None]
  - DRUG EFFECT DECREASED [None]
  - INCOHERENT [None]
  - PETIT MAL EPILEPSY [None]
